FAERS Safety Report 9402042 (Version 3)
Quarter: 2013Q3

REPORT INFORMATION
  Report Type: Report from Study
  Country: BR (occurrence: BR)
  Receive Date: 20130716
  Receipt Date: 20130808
  Transmission Date: 20140515
  Serious: Yes (Other)
  Sender: FDA-Public Use
  Company Number: PHHY2013BR074095

PATIENT
  Age: 63 Year
  Sex: Female
  Weight: 92 kg

DRUGS (9)
  1. SANDOSTATIN LAR [Suspect]
     Indication: ACROMEGALY
     Dosage: 10 MG, UNK
     Route: 030
     Dates: start: 200805
  2. SANDOSTATIN LAR [Suspect]
     Dosage: 20 MG, UNK
     Route: 030
  3. SANDOSTATIN LAR [Suspect]
     Dosage: 30 MG, UNK
     Route: 030
  4. SANDOSTATIN LAR [Suspect]
     Dosage: 20 MG, 2 AMPOULES
     Route: 030
     Dates: end: 201306
  5. CABERGOLINE [Concomitant]
     Indication: ACROMEGALY
     Dosage: 7 DF, A WEEK
     Dates: start: 200805
  6. CABERGOLINE [Concomitant]
     Dosage: 7 DF, QD
     Route: 048
  7. CAPTOPRIL [Concomitant]
     Indication: HYPERTENSION
     Dosage: 5 DF, QD
     Route: 048
     Dates: start: 1999
  8. CLORANA [Concomitant]
     Indication: DIURETIC THERAPY
     Dosage: 1 DF, QD
     Route: 048
     Dates: start: 1999
  9. SERTRALINE [Concomitant]
     Indication: DEPRESSION
     Dosage: 1 DF, QD
     Route: 048

REACTIONS (7)
  - General physical health deterioration [Recovering/Resolving]
  - Osteoporosis [Recovering/Resolving]
  - Calcium deficiency [Recovering/Resolving]
  - Blood cholesterol increased [Recovering/Resolving]
  - Hypertension [Recovering/Resolving]
  - Pain [Recovering/Resolving]
  - Drug ineffective [Unknown]
